FAERS Safety Report 4693167-1 (Version None)
Quarter: 2005Q2

REPORT INFORMATION
  Report Type: 
  Country: None (occurrence: None)
  Receive Date: 20050617
  Receipt Date: 20050606
  Transmission Date: 20051028
  Serious: Yes (Hospitalization)
  Sender: FDA-Public Use
  Company Number: FR-JNJFOC-20050603765

PATIENT
  Age: 27 Year
  Sex: Male

DRUGS (4)
  1. IXPRIM [Suspect]
     Dosage: TOTAL DOSE 1,500MG
     Route: 049
  2. DI-ANTALVIC [Interacting]
     Route: 049
  3. DI-ANTALVIC [Interacting]
     Dosage: TOTAL DOSE: 1,200MG DEXTROPOPOXYPHENE; 29G PARACETAMOL.
     Route: 049
  4. SUBUTEX [Interacting]
     Indication: DRUG WITHDRAWAL MAINTENANCE THERAPY
     Route: 060

REACTIONS (4)
  - DRUG INEFFECTIVE [None]
  - DRUG INTERACTION [None]
  - INTENTIONAL MISUSE [None]
  - TOOTHACHE [None]
